FAERS Safety Report 9679382 (Version 2)
Quarter: 2013Q4

REPORT INFORMATION
  Report Type: Spontaneous
  Country: US (occurrence: US)
  Receive Date: 20131109
  Receipt Date: 20131109
  Transmission Date: 20140711
  Serious: Yes (Life-Threatening, Hospitalization)
  Sender: FDA-Public Use
  Company Number: US-SANOFI-AVENTIS-2013SA070110

PATIENT
  Age: 66 Year
  Sex: Male

DRUGS (2)
  1. MULTAQ [Suspect]
     Route: 065
  2. DILTIAZEM [Suspect]
     Route: 065

REACTIONS (2)
  - Acute hepatic failure [Recovered/Resolved]
  - Jaundice [Recovered/Resolved]
